FAERS Safety Report 11755743 (Version 1)
Quarter: 2015Q4

REPORT INFORMATION
  Report Type: Spontaneous
  Country: US (occurrence: None)
  Receive Date: 20151118
  Receipt Date: 20151118
  Transmission Date: 20160304
  Serious: Yes (Disabling)
  Sender: FDA-Public Use
  Company Number: None

PATIENT
  Age: 56 Year
  Sex: Female
  Weight: 80.29 kg

DRUGS (13)
  1. TEMAZAPAM [Concomitant]
  2. ALLEGRA [Concomitant]
     Active Substance: FEXOFENADINE HYDROCHLORIDE
  3. BUSPIRONE HCL [Concomitant]
     Active Substance: BUSPIRONE HYDROCHLORIDE
  4. TRAMADOL HCL [Concomitant]
     Active Substance: TRAMADOL HYDROCHLORIDE
  5. CALCIUM [Concomitant]
     Active Substance: CALCIUM
  6. PRAMIPEXOLE. [Concomitant]
     Active Substance: PRAMIPEXOLE
  7. CYMBALTA [Concomitant]
     Active Substance: DULOXETINE HYDROCHLORIDE
  8. LORAZEPAM. [Concomitant]
     Active Substance: LORAZEPAM
  9. WOMENS CENTRUM MULTIVITAMIN [Concomitant]
  10. GLUCOSAMINE CHONDROITIN COMPLEX [Concomitant]
     Active Substance: CHONDROITIN SULFATE (BOVINE)\GLUCOSAMINE HYDROCHLORIDE
  11. LIPITOR [Suspect]
     Active Substance: ATORVASTATIN CALCIUM
     Indication: BLOOD CHOLESTEROL INCREASED
     Dosage: 1 A DAY
     Route: 048
     Dates: start: 20080430, end: 20100430
  12. LEVOTHYROXINE. [Concomitant]
     Active Substance: LEVOTHYROXINE
  13. SIMVASTATIN TABS LUPIN [Concomitant]
     Active Substance: SIMVASTATIN

REACTIONS (4)
  - Polymyalgia rheumatica [None]
  - Myopathy [None]
  - Weight increased [None]
  - Fibromyalgia [None]

NARRATIVE: CASE EVENT DATE: 20100422
